FAERS Safety Report 4553325-3 (Version None)
Quarter: 2005Q1

REPORT INFORMATION
  Report Type: 
  Country: None (occurrence: None)
  Receive Date: 20050112
  Receipt Date: 20041230
  Transmission Date: 20050727
  Serious: Yes (Other)
  Sender: FDA-Public Use
  Company Number: UY-2004-037355

PATIENT
  Age: 46 Year
  Sex: Female
  Weight: 62 kg

DRUGS (2)
  1. MIRENA [Suspect]
     Indication: ENDOMETRIAL HYPERPLASIA
     Dosage: 20 UG/DAY , CONT , INTRA-AUTERINE
     Route: 015
     Dates: start: 20040606
  2. ASPIRIN [Concomitant]

REACTIONS (4)
  - HAEMATOMA [None]
  - METRORRHAGIA [None]
  - THROMBOPHLEBITIS [None]
  - VARICOSE VEIN [None]
